FAERS Safety Report 7767311-3 (Version None)
Quarter: 2011Q3

REPORT INFORMATION
  Report Type: 
  Country: None (occurrence: None)
  Receive Date: 20110922
  Receipt Date: 20110330
  Transmission Date: 20111222
  Serious: No
  Sender: FDA-Public Use
  Company Number: US-ASTRAZENECA-2011SE18200

PATIENT
  Age: 37 Year
  Sex: Female

DRUGS (3)
  1. SEROQUEL XR [Suspect]
     Indication: SCHIZOAFFECTIVE DISORDER
     Route: 048
     Dates: start: 20110101
  2. SEROQUEL XR [Suspect]
     Indication: MAJOR DEPRESSION
     Route: 048
     Dates: start: 20110101
  3. LEXAPRO [Concomitant]
     Indication: MAJOR DEPRESSION

REACTIONS (3)
  - AGGRESSION [None]
  - AGITATION [None]
  - DRUG DOSE OMISSION [None]
